FAERS Safety Report 13845137 (Version 1)
Quarter: 2017Q3

REPORT INFORMATION
  Report Type: Spontaneous
  Country: DE (occurrence: DE)
  Receive Date: 20170808
  Receipt Date: 20170808
  Transmission Date: 20171127
  Serious: Yes (Other)
  Sender: FDA-Public Use
  Company Number: DE-TEVA-793220GER

PATIENT
  Age: 45 Year
  Sex: Male

DRUGS (2)
  1. ALLOPURINOL-RATIOPHARM 300 MG TABLETTEN [Suspect]
     Active Substance: ALLOPURINOL
     Dosage: 100 MILLIGRAM DAILY;
     Route: 048
  2. ALLOPURINOL-RATIOPHARM 300 MG TABLETTEN [Suspect]
     Active Substance: ALLOPURINOL
     Indication: GOUT
     Dosage: 150 MILLIGRAM DAILY;
     Route: 048

REACTIONS (2)
  - Gouty tophus [Unknown]
  - Nephrolithiasis [Unknown]

NARRATIVE: CASE EVENT DATE: 2017
